FAERS Safety Report 8549805-6 (Version None)
Quarter: 2012Q3

REPORT INFORMATION
  Report Type: 
  Country: None (occurrence: None)
  Receive Date: 20120730
  Receipt Date: 20120723
  Transmission Date: 20120928
  Serious: Yes (Hospitalization)
  Sender: FDA-Public Use
  Company Number: US-B.I. PHARMACEUTICALS,INC./RIDGEFIELD-2012-BP-10736BP

PATIENT
  Sex: Female

DRUGS (7)
  1. BETABLOCKER [Concomitant]
  2. DIURETICS [Concomitant]
  3. ACTOS [Suspect]
     Indication: TYPE 2 DIABETES MELLITUS
     Dosage: 15 MG
  4. PRADAXA [Suspect]
  5. SAXAGLIPTIN [Suspect]
     Indication: TYPE 2 DIABETES MELLITUS
     Dates: start: 20101221
  6. ANGIOTENSIN RECEPTOR BLOCKER [Concomitant]
  7. DIHYDROPYRIDINES [Concomitant]

REACTIONS (1)
  - TOXICITY TO VARIOUS AGENTS [None]
